FAERS Safety Report 7541834-4 (Version None)
Quarter: 2011Q2

REPORT INFORMATION
  Report Type: 
  Country: None (occurrence: None)
  Receive Date: 20110613
  Receipt Date: 20110601
  Transmission Date: 20111010
  Serious: Yes (Other)
  Sender: FDA-Public Use
  Company Number: FR-NOVOPROD-325914

PATIENT
  Age: 49 Year
  Sex: Female
  Weight: 100 kg

DRUGS (7)
  1. FENOFIBRATE [Concomitant]
     Indication: DYSLIPIDAEMIA
     Dosage: UNK
     Route: 048
     Dates: start: 20030101
  2. NOVORAPID [Concomitant]
     Indication: DIABETES MELLITUS
     Dosage: UNK
     Route: 048
     Dates: start: 20110308
  3. VICTOZA [Suspect]
     Indication: TYPE 2 DIABETES MELLITUS
     Dosage: 0.6 MG, QD
     Route: 058
     Dates: start: 20110315, end: 20110330
  4. RAMIPRIL [Concomitant]
     Indication: HYPERTENSION
     Dosage: 5 MG, QD
     Route: 048
     Dates: start: 20050101
  5. OXEOL [Concomitant]
     Indication: RESPIRATORY FAILURE
     Dosage: UNK
     Route: 048
     Dates: start: 20060101
  6. MIZOLASTINE [Concomitant]
     Dosage: 10 MG, QD
     Route: 048
     Dates: start: 20110325
  7. RABEPRAZOLE SODIUM [Concomitant]
     Indication: GASTRITIS
     Dosage: UNK
     Route: 048
     Dates: start: 20080101

REACTIONS (1)
  - ERYTHEMA MULTIFORME [None]
